FAERS Safety Report 11497699 (Version 2)
Quarter: 2015Q4

REPORT INFORMATION
  Report Type: Spontaneous
  Country: US (occurrence: US)
  Receive Date: 20150911
  Receipt Date: 20151014
  Transmission Date: 20160304
  Serious: Yes (Other)
  Sender: FDA-Public Use
  Company Number: US-TAKEDA-2015TUS005589

PATIENT

DRUGS (7)
  1. GLYBURIDE W/METFORMIN [Concomitant]
     Active Substance: GLYBURIDE\METFORMIN
     Indication: DIABETES MELLITUS
     Dosage: 500UNK
     Dates: start: 20060417, end: 20080317
  2. GLYBURIDE W/METFORMIN [Concomitant]
     Active Substance: GLYBURIDE\METFORMIN
     Dosage: 5-500, UNK
     Dates: start: 20080317, end: 20140806
  3. GLYBURIDE W/METFORMIN [Concomitant]
     Active Substance: GLYBURIDE\METFORMIN
     Dosage: 5-500, UNK
  4. METFORMIN [Concomitant]
     Active Substance: METFORMIN HYDROCHLORIDE
     Dosage: 850 MG, UNK
     Dates: start: 20100628, end: 20100926
  5. GLIPIZIDE- METFORMIN [Concomitant]
     Indication: DIABETES MELLITUS
     Dosage: 5-500
     Dates: start: 20100517, end: 20100708
  6. ACTOS [Suspect]
     Active Substance: PIOGLITAZONE HYDROCHLORIDE
     Indication: TYPE 2 DIABETES MELLITUS
     Dosage: UNK
     Route: 048
     Dates: start: 20101024, end: 20110122
  7. GLUCOPHAGE [Concomitant]
     Active Substance: METFORMIN HYDROCHLORIDE
     Dosage: UNK

REACTIONS (1)
  - Bladder cancer [Not Recovered/Not Resolved]

NARRATIVE: CASE EVENT DATE: 20131213
